FAERS Safety Report 15700437 (Version 1)
Quarter: 2018Q4

REPORT INFORMATION
  Report Type: Report from Study
  Country: US (occurrence: US)
  Receive Date: 20181207
  Receipt Date: 20181207
  Transmission Date: 20190205
  Serious: Yes (Hospitalization)
  Sender: FDA-Public Use
  Company Number: US-PFIZER INC-2018450858

PATIENT
  Age: 11 Year
  Sex: Female
  Weight: 50.45 kg

DRUGS (2)
  1. ZOLOFT [Suspect]
     Active Substance: SERTRALINE HYDROCHLORIDE
     Indication: DEPRESSION
     Dosage: 25 MG, DAILY
     Route: 048
     Dates: start: 20171129
  2. TOFACITINIB CITRATE [Suspect]
     Active Substance: TOFACITINIB CITRATE
     Indication: JUVENILE IDIOPATHIC ARTHRITIS
     Dosage: 5 MG, 2X/DAY
     Route: 048
     Dates: start: 20180118

REACTIONS (1)
  - Major depression [Recovered/Resolved]

NARRATIVE: CASE EVENT DATE: 20181027
